FAERS Safety Report 17222804 (Version 2)
Quarter: 2020Q1

REPORT INFORMATION
  Report Type: Report from Study
  Country: GB (occurrence: GB)
  Receive Date: 20200102
  Receipt Date: 20200105
  Transmission Date: 20200409
  Serious: Yes (Life-Threatening, Hospitalization)
  Sender: FDA-Public Use
  Company Number: GB-CELLTRION INC.-2018GB025357

PATIENT

DRUGS (8)
  1. RANITIDINE. [Concomitant]
     Active Substance: RANITIDINE
     Dosage: 300 MG, DAILY
  2. FLUCONAZOLE. [Concomitant]
     Active Substance: FLUCONAZOLE
     Dosage: 50 MG, DAILY
  3. TRUXIMA [Suspect]
     Active Substance: RITUXIMAB-ABBS
     Indication: DIFFUSE LARGE B-CELL LYMPHOMA
     Dosage: 800 MG
     Route: 042
     Dates: start: 20180619, end: 20180709
  4. DOMPERIDONE [Concomitant]
     Active Substance: DOMPERIDONE
     Indication: MALAISE
     Dosage: UNK, PRN
  5. R CHOP [Concomitant]
     Active Substance: CYCLOPHOSPHAMIDE\DOXORUBICIN\PREDNISONE\RITUXIMAB\VINCRISTINE
     Dosage: UNK
     Dates: start: 20180731
  6. ACICLOVIR [Concomitant]
     Active Substance: ACYCLOVIR
     Dosage: 400 MG, DAILY
  7. TRUXIMA [Suspect]
     Active Substance: RITUXIMAB-ABBS
     Dosage: 800 MG
     Route: 042
     Dates: end: 20180821
  8. GAVISCON ADVANCED [Concomitant]
     Indication: GASTROOESOPHAGEAL REFLUX DISEASE
     Dosage: UNK, PRN
     Route: 048

REACTIONS (10)
  - Pyrexia [Recovered/Resolved]
  - Acute kidney injury [Not Recovered/Not Resolved]
  - Pyrexia [Recovered/Resolved]
  - Diarrhoea [Recovered/Resolved]
  - Underdose [Unknown]
  - Pulmonary embolism [Unknown]
  - Febrile neutropenia [Unknown]
  - Oedema [Not Recovered/Not Resolved]
  - Pyrexia [Recovered/Resolved]
  - Fatigue [Not Recovered/Not Resolved]

NARRATIVE: CASE EVENT DATE: 20180801
